FAERS Safety Report 8211050-1 (Version None)
Quarter: 2012Q1

REPORT INFORMATION
  Report Type: 
  Country: None (occurrence: None)
  Receive Date: 20120315
  Receipt Date: 20120307
  Transmission Date: 20120608
  Serious: Yes (Hospitalization, Other)
  Sender: FDA-Public Use
  Company Number: PHHY2012JP017594

PATIENT
  Age: 71 Year
  Sex: Male
  Weight: 62 kg

DRUGS (1)
  1. ZOLEDRONIC ACID [Suspect]
     Indication: MULTIPLE MYELOMA

REACTIONS (8)
  - HYPOKALAEMIA [None]
  - BLOOD CREATININE INCREASED [None]
  - DYSSTASIA [None]
  - DIARRHOEA HAEMORRHAGIC [None]
  - RENAL FAILURE CHRONIC [None]
  - BLOOD PRESSURE DECREASED [None]
  - COLON ADENOMA [None]
  - MUSCULAR WEAKNESS [None]
